FAERS Safety Report 4827408-4 (Version None)
Quarter: 2005Q4

REPORT INFORMATION
  Report Type: 
  Country: None (occurrence: None)
  Receive Date: 20051114
  Receipt Date: 20050725
  Transmission Date: 20060501
  Serious: Yes (Hospitalization, Disabling)
  Sender: FDA-Public Use
  Company Number: US-MERCK-0507USA03905

PATIENT
  Age: 54 Year
  Sex: Female
  Weight: 82 kg

DRUGS (3)
  1. VIOXX [Suspect]
     Indication: BACK PAIN
     Route: 048
     Dates: start: 20000101, end: 20040901
  2. VIOXX [Suspect]
     Indication: ARTHRALGIA
     Route: 048
     Dates: start: 20000101, end: 20040901
  3. HYDROCHLOROTHIAZIDE [Concomitant]
     Route: 065

REACTIONS (27)
  - ANXIETY [None]
  - AORTIC ARTERIOSCLEROSIS [None]
  - ARRHYTHMIA [None]
  - BLOOD CHOLESTEROL INCREASED [None]
  - CERUMEN IMPACTION [None]
  - CHOLELITHIASIS [None]
  - CHRONIC OBSTRUCTIVE PULMONARY DISEASE [None]
  - CORONARY ARTERY DISEASE [None]
  - CORONARY ARTERY THROMBOSIS [None]
  - DEPRESSION [None]
  - DYSPNOEA EXERTIONAL [None]
  - ECCHYMOSIS [None]
  - EPISTAXIS [None]
  - FALL [None]
  - GASTROOESOPHAGEAL REFLUX DISEASE [None]
  - HYPERSENSITIVITY [None]
  - HYPERTENSION [None]
  - INTERVERTEBRAL DISC DEGENERATION [None]
  - IRRITABLE BOWEL SYNDROME [None]
  - JOINT SPRAIN [None]
  - MYOCARDIAL INFARCTION [None]
  - OBESITY [None]
  - PERIPHERAL VASCULAR DISORDER [None]
  - PLANTAR FASCIITIS [None]
  - PLATELET AGGREGATION INCREASED [None]
  - PULMONARY EMBOLISM [None]
  - STRESS [None]
